FAERS Safety Report 6383281-7 (Version None)
Quarter: 2009Q3

REPORT INFORMATION
  Report Type: 
  Country: None (occurrence: None)
  Receive Date: 20090930
  Receipt Date: 20090924
  Transmission Date: 20100115
  Serious: Yes (Hospitalization, Other)
  Sender: FDA-Public Use
  Company Number: US-ABBOTT-09P-163-0599027-00

PATIENT
  Age: 59 Year
  Sex: Female
  Weight: 71.1 kg

DRUGS (19)
  1. DIVALPROEX SODIUM [Suspect]
     Indication: CONVULSION
  2. DIVALPROEX SODIUM [Interacting]
  3. DIVALPROEX SODIUM [Interacting]
  4. ASPIRIN [Interacting]
     Indication: CARDIOVASCULAR EVENT PROPHYLAXIS
  5. ATENOLOL [Concomitant]
     Indication: HYPERTENSION
  6. BENAZEPRIL HYDROCHLORIDE [Concomitant]
     Indication: HYPERTENSION
  7. HYDROCHLOROTHIAZIDE [Concomitant]
     Indication: HYPERTENSION
  8. GLIPIZIDE [Concomitant]
     Indication: TYPE 2 DIABETES MELLITUS
  9. SIMVASTATIN [Concomitant]
     Indication: HYPERLIPIDAEMIA
  10. NIACIN [Concomitant]
     Indication: HYPERLIPIDAEMIA
  11. ASPIRIN [Concomitant]
  12. LEVOTHYROXINE SODIUM [Concomitant]
     Indication: HYPOTHYROIDISM
  13. RISPERIDONE [Concomitant]
     Indication: PSYCHOTIC DISORDER
  14. BROMOCRIPTINE [Concomitant]
     Indication: ADVERSE DRUG REACTION
  15. RANITIDINE [Concomitant]
     Indication: GASTROOESOPHAGEAL REFLUX DISEASE
  16. LACTULOSE [Concomitant]
     Indication: CONSTIPATION
  17. CALCIUM [Concomitant]
     Indication: VITAMIN SUPPLEMENTATION
     Dosage: NOT REPORTED
  18. VITAMIN D W/VITAMIN E [Concomitant]
     Indication: VITAMIN SUPPLEMENTATION
     Dosage: NOT REPORTED
  19. METFORMIN HCL [Concomitant]
     Indication: HYPERGLYCAEMIA

REACTIONS (2)
  - DRUG INTERACTION [None]
  - DRUG TOXICITY [None]
